FAERS Safety Report 6601227-0 (Version None)
Quarter: 2010Q1

REPORT INFORMATION
  Report Type: 
  Country: None (occurrence: None)
  Receive Date: 20100224
  Receipt Date: 20100224
  Transmission Date: 20100710
  Serious: Yes (Other)
  Sender: FDA-Public Use
  Company Number: None

PATIENT
  Age: 66 Year
  Sex: Female
  Weight: 90.7194 kg

DRUGS (1)
  1. SERTRALINE HCL [Suspect]
     Indication: DEPRESSION
     Dosage: 1 DAILY 047
     Dates: start: 20091002, end: 20091024

REACTIONS (5)
  - ALOPECIA [None]
  - DIZZINESS [None]
  - PHOTOPSIA [None]
  - THERAPEUTIC RESPONSE DECREASED [None]
  - TINNITUS [None]
